FAERS Safety Report 7702036-1 (Version None)
Quarter: 2011Q3

REPORT INFORMATION
  Report Type: 
  Country: None (occurrence: None)
  Receive Date: 20110822
  Receipt Date: 20110818
  Transmission Date: 20111222
  Serious: Yes (Life-Threatening)
  Sender: FDA-Public Use
  Company Number: FR-PFIZER INC-2011190283

PATIENT
  Age: 81 Year
  Sex: Male

DRUGS (1)
  1. ATORVASTATIN CALCIUM [Suspect]
     Dosage: UNK
     Route: 048
     Dates: end: 20110131

REACTIONS (3)
  - CARDIAC DISORDER [None]
  - BLOOD CREATINE PHOSPHOKINASE INCREASED [None]
  - NERVOUS SYSTEM DISORDER [None]
